FAERS Safety Report 23406851 (Version 2)
Quarter: 2024Q1

REPORT INFORMATION
  Report Type: Spontaneous
  Country: NL (occurrence: NL)
  Receive Date: 20240116
  Receipt Date: 20240119
  Transmission Date: 20240410
  Serious: Yes (Other)
  Sender: FDA-Public Use
  Company Number: NL-BAUSCH-BL-2024-000635

PATIENT
  Sex: Female

DRUGS (2)
  1. PLENVU [Suspect]
     Active Substance: ASCORBIC ACID\POLYETHYLENE GLYCOL 3350\POTASSIUM CHLORIDE\SODIUM ASCORBATE\SODIUM CHLORIDE\SODIUM SU
     Indication: Bowel preparation
     Route: 065
     Dates: start: 20240104, end: 202401
  2. ASPARTAME [Suspect]
     Active Substance: ASPARTAME
     Indication: Endoscopy
     Route: 065
     Dates: start: 20240104, end: 202401

REACTIONS (1)
  - Allergic reaction to excipient [Recovering/Resolving]

NARRATIVE: CASE EVENT DATE: 20240104
